FAERS Safety Report 10626313 (Version 1)
Quarter: 2014Q4

REPORT INFORMATION
  Report Type: Spontaneous
  Country: US (occurrence: None)
  Receive Date: 20141121
  Receipt Date: 20141121
  Transmission Date: 20150529
  Serious: No
  Sender: FDA-Public Use
  Company Number: 163-10004-14084974

PATIENT
  Age: 38 Year
  Sex: Female
  Weight: 46.27 kg

DRUGS (8)
  1. PREMARIN (ESTROGENS CONJUGATED) [Concomitant]
  2. VITAMIN B12 [Concomitant]
     Active Substance: CYANOCOBALAMIN
  3. OTEZLA [Suspect]
     Active Substance: APREMILAST
     Indication: PSORIATIC ARTHROPATHY
     Route: 048
     Dates: start: 20140816, end: 20140817
  4. BACLOFEN (BACLOFEN) [Concomitant]
     Active Substance: BACLOFEN
  5. DIAZEPAM (DIZAEPAM) [Concomitant]
  6. SINGULAIR (UNKNOWN) [Concomitant]
  7. ZOFRAN (ONDANSETRON HYDROCHLORIDE) [Concomitant]
  8. TOPAMAX [Concomitant]
     Active Substance: TOPIRAMATE

REACTIONS (9)
  - Vision blurred [None]
  - Hot flush [None]
  - Migraine [None]
  - Insomnia [None]
  - Headache [None]
  - Anxiety [None]
  - Nausea [None]
  - Vomiting [None]
  - Malaise [None]

NARRATIVE: CASE EVENT DATE: 2014
